FAERS Safety Report 4807314-1 (Version None)
Quarter: 2005Q4

REPORT INFORMATION
  Report Type: 
  Country: None (occurrence: None)
  Receive Date: 20051020
  Receipt Date: 20051020
  Transmission Date: 20060501
  Serious: Yes (Other)
  Sender: FDA-Public Use
  Company Number: None

PATIENT

DRUGS (9)
  1. GEMFIBROZIL [Suspect]
     Indication: HYPERLIPIDAEMIA
     Dosage: 600 MG BID
  2. FELODIPINE [Concomitant]
  3. LORATADINE [Concomitant]
  4. METFORMIN [Concomitant]
  5. GUAFENESIN [Concomitant]
  6. NORTRIPTYLINE HCL [Concomitant]
  7. TERAZOSIN HCL [Concomitant]
  8. HYDROCHLOROTHIAZIDE [Concomitant]
  9. LISINOPRIL [Concomitant]

REACTIONS (4)
  - DEPRESSION [None]
  - FATIGUE [None]
  - PAIN [None]
  - STOMACH DISCOMFORT [None]
